FAERS Safety Report 17473660 (Version 1)
Quarter: 2020Q1

REPORT INFORMATION
  Report Type: Spontaneous
  Country: US (occurrence: US)
  Receive Date: 20200228
  Receipt Date: 20200228
  Transmission Date: 20200409
  Serious: No
  Sender: FDA-Public Use
  Company Number: None

PATIENT

DRUGS (2)
  1. ENVARSUS XR [Suspect]
     Active Substance: TACROLIMUS
  2. ENVARSUS XR [Suspect]
     Active Substance: TACROLIMUS

REACTIONS (4)
  - Product appearance confusion [None]
  - Product packaging confusion [None]
  - Product dispensing error [None]
  - Intercepted product dispensing error [None]
